FAERS Safety Report 10509439 (Version 1)
Quarter: 2014Q4

REPORT INFORMATION
  Report Type: Spontaneous
  Country: US (occurrence: US)
  Receive Date: 20141009
  Receipt Date: 20141009
  Transmission Date: 20150528
  Serious: Yes (Hospitalization, Other)
  Sender: FDA-Public Use
  Company Number: US-JNJFOC-20141004994

PATIENT
  Sex: Male

DRUGS (37)
  1. LANTUS [Concomitant]
     Active Substance: INSULIN GLARGINE
     Dosage: 100UNIT/ML, INJ 1 UNIT 40 UNITS
     Route: 058
  2. PROGRAF [Concomitant]
     Active Substance: TACROLIMUS\TACROLIMUS ANHYDROUS
     Dosage: 1MG, 1ML TWICE DAILY
     Route: 048
  3. ALBUTEROL IPRATROPIUM [Concomitant]
     Dosage: 2.5MG-0.5/3ML SOL UD ONE NEBULIZED INHALATION EVERY 4 HOURS
     Route: 055
  4. SODIUM CHLORIDE. [Concomitant]
     Active Substance: SODIUM CHLORIDE
     Dosage: 10% INHAL SOLN 15ML ONE INHALATION EVERY 6 HOURS
     Route: 055
  5. MULTIVITAMINS [Concomitant]
     Active Substance: VITAMINS
     Route: 048
  6. OLYSIO [Suspect]
     Active Substance: SIMEPREVIR
     Indication: HEPATITIS C
     Route: 048
  7. ACTIGALL [Concomitant]
     Active Substance: URSODIOL
     Route: 048
  8. ALDACTONE [Concomitant]
     Active Substance: SPIRONOLACTONE
     Route: 048
  9. LOPRESSOR [Concomitant]
     Active Substance: METOPROLOL TARTRATE
     Dosage: 25MG TAB 0.5 TABLET TWICE DAILY
     Route: 048
  10. PERIDEX [Concomitant]
     Active Substance: CHLORHEXIDINE GLUCONATE
     Dosage: SWISH-SPIT TWICE DAILY
     Route: 065
  11. CEFTAZIDIME. [Concomitant]
     Active Substance: CEFTAZIDIME
     Dosage: 2 G, 2 EA, 200ML/HR EVERY 8 HOURS
     Route: 042
  12. ESOMEPRAZOLE [Concomitant]
     Active Substance: ESOMEPRAZOLE
     Dosage: ^DRU UD^
     Route: 048
  13. GLUCAGON. [Concomitant]
     Active Substance: GLUCAGON
     Indication: BLOOD GLUCOSE ABNORMAL
     Dosage: 1 EA EVERY 4 HOURS AS NEEDED
     Route: 058
  14. INSULIN [Concomitant]
     Active Substance: INSULIN NOS
     Dosage: AGRESSIVE INSULIN SLIDING SCALE EVERY 4 HOURS
     Route: 058
  15. NYSTATIN. [Concomitant]
     Active Substance: NYSTATIN
     Dosage: 500,000 UNITS, 5ML, ^SWISH-SWAL^ EVERY 6 HOURS
     Route: 065
  16. LASIX [Concomitant]
     Active Substance: FUROSEMIDE
     Dosage: 30 TAB
     Route: 048
  17. DEXTROSE. [Concomitant]
     Active Substance: DEXTROSE
     Indication: BLOOD GLUCOSE ABNORMAL
     Dosage: 12.5 G, 25ML, EVERY 4 HOURS AS NECESSARY
     Route: 042
  18. PULMOZYME [Concomitant]
     Active Substance: DORNASE ALFA
     Dosage: 2.5ML NEBULIZED INHALATION TWICE DAILY
     Route: 055
  19. BACTRIM [Concomitant]
     Active Substance: SULFAMETHOXAZOLE\TRIMETHOPRIM
     Dosage: 400MG-80MG, 2 TAB, MWF
     Route: 048
  20. PRILOSEC [Concomitant]
     Active Substance: OMEPRAZOLE MAGNESIUM
     Dosage: 30 CAP
     Route: 048
  21. PROGRAF [Concomitant]
     Active Substance: TACROLIMUS\TACROLIMUS ANHYDROUS
     Dosage: EVERY 12 HOURS, 60 CAP
     Route: 048
  22. CANDESARTAN [Concomitant]
     Active Substance: CANDESARTAN
     Dosage: 8MG TAB
     Route: 048
  23. HYDRALAZINE [Concomitant]
     Active Substance: HYDRALAZINE HYDROCHLORIDE
     Dosage: 1 ML EVERY 4 HOURS AS NEEDED
     Route: 042
  24. TRYPSIN BALSAM PERU AND CASTOR OIL [Concomitant]
     Dosage: 1 APP, TWICE DAILY
     Route: 061
  25. XENADERM [Concomitant]
     Active Substance: BALSAM PERU OIL\CASTOR OIL\TRYPSIN
     Indication: WOUND TREATMENT
     Dosage: ONE APPLICATION TWICE DAILY AS NEEDED
     Route: 061
  26. ATOVAQUONE. [Concomitant]
     Active Substance: ATOVAQUONE
     Dosage: 750MG/5ML SUSP 5ML 1500MG 10ML
     Route: 048
  27. VALCYTE [Concomitant]
     Active Substance: VALGANCICLOVIR HYDROCHLORIDE
     Dosage: 900 MG, 2 TAB, TWICE DAILY, 56 TAB
     Route: 048
  28. SOFOSBUVIR [Suspect]
     Active Substance: SOFOSBUVIR
     Indication: HEPATITIS C
     Route: 048
  29. MULTIVITAMINS [Concomitant]
     Active Substance: VITAMINS
     Route: 050
  30. TOBRAMICIN [Concomitant]
     Dosage: TOBRAMYCIN ADDITIVE + SODIUM CHLORIDE, INTERMITTENT 7.5ML: 300 MG, 0.25 EA, 7.5 ML/HR, TWICE DAILY
     Route: 055
  31. AMBIEN [Concomitant]
     Active Substance: ZOLPIDEM TARTRATE
     Dosage: TWO TABLETS AT BEDTIME AS NECESSARY
     Route: 048
  32. ARTIFICIAL TEARS NOS [Concomitant]
     Active Substance: GLYCERIN\HYPROMELLOSE 2910 (15 MPA.S)\PETROLATUM OR POLYVINYL ALCOHOL\POLYETHYLENE GLYCOL 400 OR MINERAL OIL\POVIDONE OR PROPYLENE GLYCOL
     Indication: DRY EYE
     Dosage: 2 DROPS, EVERY 4 HOURS AS NEEDED
     Route: 047
  33. DEXTROSE. [Concomitant]
     Active Substance: DEXTROSE
     Indication: BLOOD GLUCOSE ABNORMAL
     Dosage: 25 G, 50 ML EVERY 4 HOURS AS NECESSARY
     Route: 042
  34. TYLENOL [Concomitant]
     Active Substance: ACETAMINOPHEN
     Indication: PAIN
     Dosage: 325MG TWO TABLET EVERY 6 HOURS AS NEEDED
     Route: 048
  35. IMODIUM [Concomitant]
     Active Substance: LOPERAMIDE HYDROCHLORIDE
     Dosage: 3MG, 15ML EVERY 6 HOURS
     Route: 050
  36. GANCICLOVIR. [Concomitant]
     Active Substance: GANCICLOVIR
     Dosage: 300MG, 6ML, 100 ML/HR DAILY
     Route: 042
  37. HYDROCORTISONE. [Concomitant]
     Active Substance: HYDROCORTISONE
     Dosage: 100MG ING VIAL 25MG 0.25 EA EVERY 12 HOURS AS NEEDED
     Route: 042

REACTIONS (8)
  - Liver transplant [Unknown]
  - Anaemia [Unknown]
  - Clostridium colitis [Unknown]
  - Respiratory failure [Unknown]
  - Cytomegalovirus infection [Unknown]
  - Off label use [Unknown]
  - Pseudomonas infection [Unknown]
  - Thrombocytopenia [Unknown]
